FAERS Safety Report 7236275-3 (Version None)
Quarter: 2011Q1

REPORT INFORMATION
  Report Type: 
  Country: None (occurrence: None)
  Receive Date: 20110111
  Receipt Date: 20101227
  Transmission Date: 20110831
  Serious: Yes (Other)
  Sender: FDA-Public Use
  Company Number: 2010SP066423

PATIENT
  Age: 35 Year
  Sex: Female
  Weight: 59.4212 kg

DRUGS (3)
  1. NUVARING [Suspect]
     Indication: CONTRACEPTION
     Dosage: VAG
     Route: 067
  2. PAXIL [Concomitant]
  3. WELLBUTRIN [Concomitant]

REACTIONS (2)
  - INCORRECT DRUG ADMINISTRATION DURATION [None]
  - ANAEMIA [None]
